FAERS Safety Report 9416315 (Version 1)
Quarter: 2013Q3

REPORT INFORMATION
  Report Type: Spontaneous
  Country: US (occurrence: US)
  Receive Date: 20130724
  Receipt Date: 20130724
  Transmission Date: 20140515
  Serious: No
  Sender: FDA-Public Use
  Company Number: US-BAYER-2013-089299

PATIENT
  Sex: Female

DRUGS (12)
  1. ALEVE GELCAPS [Suspect]
     Indication: ANALGESIC THERAPY
     Dosage: 2 DF, ONCE
     Route: 048
     Dates: start: 20130718, end: 20130718
  2. ASPIRIN [Concomitant]
  3. CHLORTHALIDONE [Concomitant]
  4. IRBESARTAN [Concomitant]
  5. DILTIAZEM [Concomitant]
  6. WARFARIN [Concomitant]
  7. CILOSTAZOL [Concomitant]
  8. ATORVASTATIN [Concomitant]
  9. ATENOLOL [Concomitant]
  10. FISH OIL [Concomitant]
  11. CALCIUM WITH VITAMIN D [Concomitant]
  12. DEXILANT [Concomitant]

REACTIONS (1)
  - Drug ineffective [None]
